FAERS Safety Report 4777402-7 (Version None)
Quarter: 2005Q3

REPORT INFORMATION
  Report Type: 
  Country: None (occurrence: None)
  Receive Date: 20050921
  Receipt Date: 20050914
  Transmission Date: 20060218
  Serious: Yes (Hospitalization, Other)
  Sender: FDA-Public Use
  Company Number: US_0411107545

PATIENT
  Age: 69 Year
  Sex: Female
  Weight: 109 kg

DRUGS (26)
  1. ZYPREXA [Suspect]
     Indication: BIPOLAR DISORDER
     Dosage: 7.5 MG/2 DAY
     Dates: start: 19971124, end: 20050716
  2. ACTOS [Concomitant]
  3. EVISTA [Concomitant]
  4. DOBUTAMINE HCL [Concomitant]
  5. DIVALPROEX SODIUM [Concomitant]
  6. GLYBURIDE [Concomitant]
  7. INSULIN [Concomitant]
  8. HUMULIN MIX [Concomitant]
  9. IMDUR [Concomitant]
  10. DITROPAN XL [Concomitant]
  11. LASIX [Concomitant]
  12. DEMADEX [Concomitant]
  13. DEPAKOTE [Concomitant]
  14. LORTAB [Concomitant]
  15. LOTREL [Concomitant]
  16. K-DUR 10 [Concomitant]
  17. NORVASC [Concomitant]
  18. ALBUTEROL [Concomitant]
  19. KEFLEX [Concomitant]
  20. ISORDIL [Concomitant]
  21. NITROBID (GLYCERYL TRINITRATE) [Concomitant]
  22. TOPROL-XL [Concomitant]
  23. ZAROXOLYN [Concomitant]
  24. XANAX [Concomitant]
  25. ALDACTONE [Concomitant]
  26. PREDNISONE [Concomitant]

REACTIONS (16)
  - ANGINA UNSTABLE [None]
  - BULLOUS IMPETIGO [None]
  - CARDIAC FAILURE CONGESTIVE [None]
  - CELLULITIS [None]
  - CORONARY ARTERY DISEASE [None]
  - DIABETES MELLITUS INSULIN-DEPENDENT [None]
  - DIABETIC COMA [None]
  - DIVERTICULITIS [None]
  - DYSURIA [None]
  - HYPERTENSION [None]
  - HYPOGLYCAEMIA [None]
  - MYOCARDIAL INFARCTION [None]
  - OBESITY [None]
  - SEPSIS [None]
  - STASIS DERMATITIS [None]
  - UROSEPSIS [None]
